FAERS Safety Report 4903529-2 (Version None)
Quarter: 2006Q1

REPORT INFORMATION
  Report Type: 
  Country: None (occurrence: None)
  Receive Date: 20060208
  Receipt Date: 20060127
  Transmission Date: 20060701
  Serious: Yes (Hospitalization)
  Sender: FDA-Public Use
  Company Number: PHBS2006CH01523

PATIENT
  Age: 49 Year
  Sex: Male

DRUGS (3)
  1. LEPONEX [Suspect]
     Dosage: 100 MG, ONCE/SINGLE
     Route: 048
     Dates: start: 20051108, end: 20051108
  2. ZYPREXA [Concomitant]
     Dosage: 2.5 MG/D
     Route: 048
  3. CITALOPRAM HYDROBROMIDE [Concomitant]
     Dosage: 10 MG/D
     Route: 048

REACTIONS (7)
  - ACCIDENTAL EXPOSURE [None]
  - AGITATION [None]
  - HYPERTENSIVE CRISIS [None]
  - MALIGNANT HYPERTENSION [None]
  - RESTLESS LEGS SYNDROME [None]
  - SINUS TACHYCARDIA [None]
  - TACHYCARDIA [None]
